FAERS Safety Report 9764639 (Version 2)
Quarter: 2013Q4

REPORT INFORMATION
  Report Type: Spontaneous
  Country: US (occurrence: US)
  Receive Date: 20131217
  Receipt Date: 20131231
  Transmission Date: 20140711
  Serious: No
  Sender: FDA-Public Use
  Company Number: US-009507513-1311USA011144

PATIENT
  Age: 13 Year
  Sex: Female

DRUGS (3)
  1. DULERA [Suspect]
     Indication: ASTHMA
     Dosage: 200/5 MCG, TWO PUFFS, BID
     Route: 055
     Dates: start: 201309
  2. DULERA [Suspect]
     Dosage: 200/5MCG TWO PUFF BID
     Dates: start: 200909
  3. MIRALAX [Concomitant]

REACTIONS (5)
  - Peak expiratory flow rate decreased [Not Recovered/Not Resolved]
  - Dyspnoea [Not Recovered/Not Resolved]
  - Drug dose omission [Unknown]
  - Product quality issue [Unknown]
  - Product quality issue [Unknown]
